FAERS Safety Report 10799098 (Version 1)
Quarter: 2015Q1

REPORT INFORMATION
  Report Type: Spontaneous
  Country: US (occurrence: US)
  Receive Date: 20150216
  Receipt Date: 20150216
  Transmission Date: 20150721
  Serious: No
  Sender: FDA-Public Use
  Company Number: US-ALLERGAN-1403408US

PATIENT
  Age: 68 Year
  Sex: Female

DRUGS (4)
  1. SYSTANE (HYPROMELLOSE 2910 (4000 MPA.S)) [Suspect]
     Active Substance: HYPROMELLOSE 2910 (4000 MPA.S)
     Indication: DRY EYE
     Dosage: 2 GTT, PRN
     Route: 047
  2. SIMBRINZA [Interacting]
     Active Substance: BRIMONIDINE TARTRATE\BRINZOLAMIDE
     Indication: INTRAOCULAR PRESSURE INCREASED
     Dosage: 2 GTT, QD
     Route: 047
     Dates: start: 201312
  3. SIMBRINZA [Interacting]
     Active Substance: BRIMONIDINE TARTRATE\BRINZOLAMIDE
     Dosage: 4 GTT, BID
     Route: 047
  4. RESTASIS [Suspect]
     Active Substance: CYCLOSPORINE
     Indication: DRY EYE
     Dosage: UNK
     Route: 047

REACTIONS (3)
  - Dry mouth [Unknown]
  - Fatigue [Unknown]
  - Dry eye [Unknown]
